FAERS Safety Report 8322202-4 (Version None)
Quarter: 2012Q2

REPORT INFORMATION
  Report Type: 
  Country: None (occurrence: None)
  Receive Date: 20120430
  Receipt Date: 20120418
  Transmission Date: 20120825
  Serious: Yes (Other)
  Sender: FDA-Public Use
  Company Number: IT-CELGENEUS-083-20785-12031491

PATIENT
  Sex: Male

DRUGS (6)
  1. PERINDOPRIL ERBUMINE [Concomitant]
     Dosage: 5 MILLIGRAM
     Route: 048
  2. ASPIRIN [Concomitant]
     Dosage: 100 MILLIGRAM
     Route: 048
  3. OMEPRAZOLE [Concomitant]
     Dosage: 20 MILLIGRAM
     Route: 048
     Dates: start: 20110715
  4. FENTANYL-100 [Concomitant]
     Route: 062
     Dates: start: 20110715
  5. SIMVASTATIN [Concomitant]
     Dosage: 20 MILLIGRAM
     Route: 048
  6. THALIDOMIDE [Suspect]
     Indication: MULTIPLE MYELOMA
     Dosage: 100 MILLIGRAM
     Route: 048
     Dates: start: 20110715, end: 20120115

REACTIONS (1)
  - HALLUCINATION [None]
